FAERS Safety Report 7919855-9 (Version None)
Quarter: 2011Q4

REPORT INFORMATION
  Report Type: 
  Country: None (occurrence: None)
  Receive Date: 20111115
  Receipt Date: 20111108
  Transmission Date: 20120403
  Serious: Yes (Hospitalization)
  Sender: FDA-Public Use
  Company Number: GER/ITL/11/0021864

PATIENT
  Sex: Female

DRUGS (1)
  1. PANTOPRAZOLE [Suspect]
     Indication: PRODUCT USED FOR UNKNOWN INDICATION

REACTIONS (3)
  - PRURITUS GENERALISED [None]
  - RASH MACULO-PAPULAR [None]
  - PRODUCT SUBSTITUTION ISSUE [None]
